FAERS Safety Report 8396535-X (Version None)
Quarter: 2012Q2

REPORT INFORMATION
  Report Type: 
  Country: None (occurrence: None)
  Receive Date: 20120530
  Receipt Date: 20120516
  Transmission Date: 20120825
  Serious: No
  Sender: FDA-Public Use
  Company Number: US-ASTRAZENECA-2012SE32022

PATIENT
  Age: 55 Year
  Sex: Male

DRUGS (1)
  1. NEXIUM [Suspect]
     Route: 048

REACTIONS (3)
  - HYPERCHLORHYDRIA [None]
  - INTENTIONAL DRUG MISUSE [None]
  - DYSPHAGIA [None]
